FAERS Safety Report 5794752-6 (Version None)
Quarter: 2008Q2

REPORT INFORMATION
  Report Type: 
  Country: None (occurrence: None)
  Receive Date: 20080625
  Receipt Date: 20080611
  Transmission Date: 20081010
  Serious: Yes (Hospitalization)
  Sender: FDA-Public Use
  Company Number: 2008S1010041

PATIENT
  Age: 16 Year
  Sex: Female

DRUGS (3)
  1. AZATHIOPRINE [Suspect]
     Indication: CROHN'S DISEASE
     Dosage: 100 MG, DAILY;
  2. CORTICOSTEROIDS (CORTICOSTEROIDS) [Concomitant]
  3. MESALAMINE [Concomitant]

REACTIONS (7)
  - BONE MARROW FAILURE [None]
  - CYTOMEGALOVIRUS INFECTION [None]
  - DIARRHOEA [None]
  - MYALGIA [None]
  - PANCYTOPENIA [None]
  - PNEUMONIA [None]
  - RED BLOOD CELL ENZYMES ABNORMAL [None]
